FAERS Safety Report 19207343 (Version 2)
Quarter: 2021Q2

REPORT INFORMATION
  Report Type: Spontaneous
  Country: JP (occurrence: JP)
  Receive Date: 20210503
  Receipt Date: 20210524
  Transmission Date: 20210717
  Serious: Yes (Other)
  Sender: FDA-Public Use
  Company Number: JP-NOVOPROD-807840

PATIENT
  Age: 44 Year
  Sex: Male

DRUGS (1)
  1. RYBELSUS [Suspect]
     Active Substance: SEMAGLUTIDE
     Indication: TYPE 2 DIABETES MELLITUS
     Dosage: UNK ,QD
     Route: 048

REACTIONS (3)
  - Atrial fibrillation [Unknown]
  - Condition aggravated [Unknown]
  - Arrhythmia [Unknown]
